FAERS Safety Report 21202993 (Version 1)
Quarter: 2022Q3

REPORT INFORMATION
  Report Type: Spontaneous
  Country: US (occurrence: US)
  Receive Date: 20220811
  Receipt Date: 20220811
  Transmission Date: 20221027
  Serious: No
  Sender: FDA-Public Use
  Company Number: US-OTSUKA-2021_031404

PATIENT
  Sex: Female

DRUGS (2)
  1. REXULTI [Suspect]
     Active Substance: BREXPIPRAZOLE
     Indication: Anxiety disorder
     Dosage: 1 MG
     Route: 048
     Dates: start: 202011
  2. REXULTI [Suspect]
     Active Substance: BREXPIPRAZOLE
     Indication: Major depression
     Dosage: 3 MG
     Route: 048
     Dates: start: 202104

REACTIONS (2)
  - Dyskinesia [Unknown]
  - Product use in unapproved indication [Unknown]
